FAERS Safety Report 14710711 (Version 1)
Quarter: 2018Q2

REPORT INFORMATION
  Report Type: Spontaneous
  Country: US (occurrence: US)
  Receive Date: 20180403
  Receipt Date: 20180403
  Transmission Date: 20180711
  Serious: No
  Sender: FDA-Public Use
  Company Number: US-ROCHE-1990895

PATIENT
  Sex: Female

DRUGS (7)
  1. ERIVEDGE [Suspect]
     Active Substance: VISMODEGIB
     Indication: BASAL CELL CARCINOMA
     Dosage: MONDAY THROUGH FRIDAY
     Route: 048
     Dates: start: 2016
  2. ESCITALOPRAM [Concomitant]
     Active Substance: ESCITALOPRAM OXALATE
     Route: 065
  3. BUSPIRONE HCL [Concomitant]
     Active Substance: BUSPIRONE HYDROCHLORIDE
     Route: 065
  4. FLUTICASONE. [Concomitant]
     Active Substance: FLUTICASONE
     Route: 065
  5. LORATADINE. [Concomitant]
     Active Substance: LORATADINE
     Route: 065
  6. SIMVASTATIN. [Concomitant]
     Active Substance: SIMVASTATIN
     Route: 065
  7. CARVEDILOL. [Concomitant]
     Active Substance: CARVEDILOL
     Route: 065

REACTIONS (1)
  - Alopecia [Not Recovered/Not Resolved]
